FAERS Safety Report 7565060-8 (Version None)
Quarter: 2011Q2

REPORT INFORMATION
  Report Type: 
  Country: None (occurrence: None)
  Receive Date: 20110622
  Receipt Date: 20110523
  Transmission Date: 20111010
  Serious: Yes (Other)
  Sender: FDA-Public Use
  Company Number: US-MYLANLABS-2011S1008617

PATIENT
  Age: 48 Year
  Sex: Male
  Weight: 88 kg

DRUGS (12)
  1. BENZTROPINE MESYLATE [Concomitant]
     Indication: DYSKINESIA
  2. LEVOTHYROXINE SODIUM [Concomitant]
     Indication: HYPOTHYROIDISM
  3. CLONIDINE [Concomitant]
     Indication: HYPERTENSION
  4. DOCUSATE [Concomitant]
     Indication: CONSTIPATION
  5. LACTULOSE [Concomitant]
     Indication: CONSTIPATION
     Dosage: 20GM/30ML
     Route: 048
  6. VITAMIN D [Concomitant]
     Indication: VITAMIN D DEFICIENCY
  7. DIVALPROEX SODIUM [Concomitant]
     Indication: SCHIZOPHRENIA, PARANOID TYPE
  8. ACETAMINOPHEN [Concomitant]
     Indication: PAIN
     Dosage: PRN FOR PAIN AND/OR ELEVATED TEMPERATURE
  9. INDERAL [Concomitant]
     Indication: HYPERTENSION
  10. SIMVASTATIN [Concomitant]
     Indication: HYPERLIPIDAEMIA
  11. CLOZAPINE [Suspect]
     Indication: SCHIZOPHRENIA, PARANOID TYPE
     Dates: start: 20110223
  12. SEROQUEL [Concomitant]
     Indication: SCHIZOPHRENIA, PARANOID TYPE

REACTIONS (1)
  - GRANULOCYTOPENIA [None]
